FAERS Safety Report 7631918-4 (Version None)
Quarter: 2011Q3

REPORT INFORMATION
  Report Type: 
  Country: None (occurrence: None)
  Receive Date: 20110725
  Receipt Date: 20110510
  Transmission Date: 20111222
  Serious: No
  Sender: FDA-Public Use
  Company Number: US-BRISTOL-MYERS SQUIBB COMPANY-15731433

PATIENT
  Age: 36 Year
  Sex: Female

DRUGS (2)
  1. COUMADIN [Suspect]
     Dosage: 1DF=5-7MG DURATION:12 YEARS
  2. THYROID SUPPLEMENT [Concomitant]

REACTIONS (2)
  - HEADACHE [None]
  - INTERNATIONAL NORMALISED RATIO FLUCTUATION [None]
